FAERS Safety Report 22089152 (Version 1)
Quarter: 2023Q1

REPORT INFORMATION
  Report Type: Spontaneous
  Country: AU (occurrence: AU)
  Receive Date: 20230313
  Receipt Date: 20230313
  Transmission Date: 20230417
  Serious: Yes (Other)
  Sender: FDA-Public Use
  Company Number: AU-BAXTER-2023BAX015231

PATIENT
  Sex: Male

DRUGS (5)
  1. DOXORUBICIN [Suspect]
     Active Substance: DOXORUBICIN
     Indication: Waldenstrom^s macroglobulinaemia recurrent
     Dosage: (START DATE: 2014), AS A PART OF RCHOP-PR REGIMEN
     Route: 065
  2. CYCLOPHOSPHAMIDE [Suspect]
     Active Substance: CYCLOPHOSPHAMIDE
     Indication: Waldenstrom^s macroglobulinaemia recurrent
     Dosage: (START DATE: 2014), AS A PART OF RCHOP-PR REGIMEN
     Route: 065
  3. VINCRISTINE SULFATE [Suspect]
     Active Substance: VINCRISTINE SULFATE
     Indication: Waldenstrom^s macroglobulinaemia recurrent
     Dosage: (START DATE: 2014), AS A PART OF RCHOP-PR REGIMEN
     Route: 065
  4. PREDNISONE [Suspect]
     Active Substance: PREDNISONE
     Indication: Waldenstrom^s macroglobulinaemia recurrent
     Dosage: (START DATE: 2014), AS A PART OF RCHOP-PR REGIMEN
     Route: 065
  5. RITUXIMAB [Suspect]
     Active Substance: RITUXIMAB
     Indication: Waldenstrom^s macroglobulinaemia recurrent
     Dosage: (START DATE: 2014), AS A PART OF RCHOP-PR REGIMEN
     Route: 065

REACTIONS (2)
  - Disease progression [Unknown]
  - Therapy partial responder [Unknown]
